FAERS Safety Report 9752741 (Version 1)
Quarter: 2013Q4

REPORT INFORMATION
  Report Type: Spontaneous
  Country: US (occurrence: None)
  Receive Date: 20131212
  Receipt Date: 20131212
  Transmission Date: 20140711
  Serious: Yes (Hospitalization)
  Sender: FDA-Public Use
  Company Number: None

PATIENT
  Age: 8 Year
  Sex: Male
  Weight: 29.4 kg

DRUGS (5)
  1. DEXAMETHASONE [Suspect]
  2. VINCRISTINE SULFATE [Suspect]
  3. CYTARABINE [Suspect]
  4. PEG-L-ASPARAGINASE (PEGASPARGASE, ONCOSPAR) [Suspect]
     Dosage: 2500 MILLION IU
  5. METHOTREXATE [Suspect]

REACTIONS (5)
  - Pneumatosis intestinalis [None]
  - Peritonitis [None]
  - Colon operation [None]
  - Large intestine perforation [None]
  - Colectomy [None]
